FAERS Safety Report 14220157 (Version 1)
Quarter: 2017Q4

REPORT INFORMATION
  Report Type: Spontaneous
  Country: US (occurrence: US)
  Receive Date: 20171123
  Receipt Date: 20171123
  Transmission Date: 20180321
  Serious: No
  Sender: FDA-Public Use
  Company Number: US-JNJFOC-20171008669

PATIENT

DRUGS (1)
  1. RISPERDAL [Suspect]
     Active Substance: RISPERIDONE
     Indication: PRODUCT USED FOR UNKNOWN INDICATION
     Route: 048

REACTIONS (7)
  - Blunted affect [Unknown]
  - Pain [Unknown]
  - Weight increased [Unknown]
  - Malaise [Unknown]
  - Breast enlargement [Unknown]
  - Galactorrhoea [Unknown]
  - Hallucination, auditory [Unknown]
